FAERS Safety Report 7820202-1 (Version None)
Quarter: 2011Q4

REPORT INFORMATION
  Report Type: 
  Country: None (occurrence: None)
  Receive Date: 20111018
  Receipt Date: 20111013
  Transmission Date: 20120403
  Serious: Yes (Death)
  Sender: FDA-Public Use
  Company Number: JP-KINGPHARMUSA00001-K201001062

PATIENT
  Sex: Male
  Weight: 52 kg

DRUGS (7)
  1. CLINDAMYCIN [Concomitant]
     Indication: SEPSIS
     Dosage: 1200 MG, QD
     Route: 042
     Dates: start: 20100718, end: 20100809
  2. FLUCONAZOLE [Concomitant]
     Indication: SEPSIS
     Dosage: 200 MG, QD
     Route: 042
     Dates: start: 20100718, end: 20100809
  3. ZOSYN [Concomitant]
     Indication: SEPSIS
     Dosage: 18 G, QD
     Route: 042
     Dates: start: 20100501, end: 20100712
  4. SYNERCID [Suspect]
     Indication: SEPSIS
     Dosage: 350 MG/KG, TID
     Route: 042
     Dates: start: 20100713, end: 20100809
  5. MEROPENEM [Concomitant]
  6. FOSMICIN [Concomitant]
     Indication: SEPSIS
     Dosage: 4 G, QD
     Route: 042
     Dates: start: 20100501, end: 20100712
  7. CIPROFLAXACIN [Concomitant]
     Indication: SEPSIS
     Dosage: 400 MG, QD
     Route: 042
     Dates: start: 20100718, end: 20100809

REACTIONS (2)
  - ARTHRALGIA [None]
  - RECTAL CANCER [None]
